FAERS Safety Report 16578722 (Version 2)
Quarter: 2019Q3

REPORT INFORMATION
  Report Type: Spontaneous
  Country: US (occurrence: US)
  Receive Date: 20190716
  Receipt Date: 20190822
  Transmission Date: 20191004
  Serious: Yes (Other)
  Sender: FDA-Public Use
  Company Number: US-PFIZER INC-2019296238

PATIENT
  Age: 80 Year
  Sex: Female
  Weight: 97.52 kg

DRUGS (1)
  1. PREPARATION H SUPPOSITORY [Suspect]
     Active Substance: COCOA BUTTER\PHENYLEPHRINE HYDROCHLORIDE
     Indication: HAEMORRHOIDS
     Dosage: UNK, 1X/DAY (ONE TIME ON MONDAY NIGHT)
     Dates: start: 20190701

REACTIONS (5)
  - Haematochezia [Unknown]
  - Product storage error [Unknown]
  - Therapeutic product effect incomplete [Unknown]
  - Blood urine present [Unknown]
  - Constipation [Unknown]

NARRATIVE: CASE EVENT DATE: 20190702
